FAERS Safety Report 21735191 (Version 1)
Quarter: 2022Q4

REPORT INFORMATION
  Report Type: Spontaneous
  Country: FR (occurrence: FR)
  Receive Date: 20221215
  Receipt Date: 20221215
  Transmission Date: 20230113
  Serious: Yes (Death, Other)
  Sender: FDA-Public Use
  Company Number: None

PATIENT
  Age: 77 Year
  Sex: Female
  Weight: 71 kg

DRUGS (1)
  1. PROLIA [Suspect]
     Active Substance: DENOSUMAB
     Indication: Osteoporotic fracture
     Dosage: 60 MILLIGRAM, QMO
     Route: 058
     Dates: start: 20220525, end: 20220625

REACTIONS (2)
  - Condition aggravated [Fatal]
  - Adenocarcinoma [Fatal]

NARRATIVE: CASE EVENT DATE: 20220625
